FAERS Safety Report 8525540-5 (Version None)
Quarter: 2012Q3

REPORT INFORMATION
  Report Type: 
  Country: None (occurrence: None)
  Receive Date: 20120720
  Receipt Date: 20120711
  Transmission Date: 20120928
  Serious: Yes (Other)
  Sender: FDA-Public Use
  Company Number: US-UCBSA-061534

PATIENT
  Age: 24 Year
  Sex: Male

DRUGS (1)
  1. CARBIDOPA AND LEVODOPA [Suspect]
     Dosage: MAXIMAL DOSE: 4 X 150/37.5

REACTIONS (1)
  - MUSCULAR WEAKNESS [None]
